FAERS Safety Report 15366324 (Version 1)
Quarter: 2018Q3

REPORT INFORMATION
  Report Type: Spontaneous
  Country: US (occurrence: US)
  Receive Date: 20180910
  Receipt Date: 20180910
  Transmission Date: 20181010
  Serious: No
  Sender: FDA-Public Use
  Company Number: US-SA-2018SA252000

PATIENT
  Age: 53 Year
  Sex: Female

DRUGS (20)
  1. PROAIR HFA [Concomitant]
     Active Substance: ALBUTEROL SULFATE
  2. TACROLIMUS. [Concomitant]
     Active Substance: TACROLIMUS
  3. ARIPIPRAZOLE. [Concomitant]
     Active Substance: ARIPIPRAZOLE
  4. CLONIDINE. [Concomitant]
     Active Substance: CLONIDINE
  5. FEROSUL [Concomitant]
  6. OMEPRAZOLE. [Concomitant]
     Active Substance: OMEPRAZOLE
  7. PROCHLORPERAZ [Concomitant]
     Active Substance: PROCHLORPERAZINE MALEATE
  8. MUPIROCIN. [Concomitant]
     Active Substance: MUPIROCIN
  9. BETAMETH DIPROPIONATE [Concomitant]
  10. NYSTATIN. [Concomitant]
     Active Substance: NYSTATIN
  11. DUPIXENT [Suspect]
     Active Substance: DUPILUMAB
     Indication: DERMATITIS ATOPIC
     Dosage: 300 MG, QOW
     Route: 058
     Dates: start: 20180623
  12. CHANTIX [Concomitant]
     Active Substance: VARENICLINE TARTRATE
  13. SUCRALFATE. [Concomitant]
     Active Substance: SUCRALFATE
  14. SULFACET [SULFACETAMIDE SODIUM] [Concomitant]
  15. CYANOCOBALAMIN. [Concomitant]
     Active Substance: CYANOCOBALAMIN
  16. TRAZODONE [Concomitant]
     Active Substance: TRAZODONE HYDROCHLORIDE
  17. TRIAMCINOLON E [Concomitant]
     Active Substance: CHLOROXINE\TRIAMCINOLONE ACETONIDE
  18. CEVIMELINE. [Concomitant]
     Active Substance: CEVIMELINE
  19. GABAPENTIN. [Concomitant]
     Active Substance: GABAPENTIN
  20. NAPROXEN. [Concomitant]
     Active Substance: NAPROXEN

REACTIONS (1)
  - Inappropriate schedule of drug administration [Unknown]

NARRATIVE: CASE EVENT DATE: 20180831
